FAERS Safety Report 13668842 (Version 4)
Quarter: 2017Q3

REPORT INFORMATION
  Report Type: Spontaneous
  Country: JP (occurrence: JP)
  Receive Date: 20170620
  Receipt Date: 20170807
  Transmission Date: 20171127
  Serious: Yes (Life-Threatening, Hospitalization)
  Sender: FDA-Public Use
  Company Number: JP-ELI_LILLY_AND_COMPANY-JP201706006561

PATIENT
  Age: 64 Year
  Sex: Male
  Weight: 60 kg

DRUGS (5)
  1. LEVOFOLINATE CALCIUM [Concomitant]
     Active Substance: LEVOLEUCOVORIN CALCIUM
     Indication: RECTAL ADENOCARCINOMA
     Dosage: 325 MG, CYCLICAL
     Route: 042
     Dates: start: 20161209, end: 20170428
  2. CYRAMZA [Suspect]
     Active Substance: RAMUCIRUMAB
     Indication: RECTAL ADENOCARCINOMA
     Dosage: 500 MG, CYCLICAL
     Route: 041
     Dates: start: 20161209, end: 20170428
  3. IRINOTECAN [Concomitant]
     Active Substance: IRINOTECAN
     Indication: RECTAL ADENOCARCINOMA
     Dosage: 195 MG, CYCLICAL
     Route: 041
     Dates: start: 20161209, end: 20170428
  4. 5 FU [Concomitant]
     Active Substance: FLUOROURACIL
     Indication: RECTAL ADENOCARCINOMA
     Dosage: 520 MG, CYCLICAL
     Route: 040
     Dates: start: 20161209, end: 20170428
  5. 5 FU [Concomitant]
     Active Substance: FLUOROURACIL
     Dosage: 3938 MG, CYCLICAL
     Route: 041
     Dates: start: 20161209, end: 20170428

REACTIONS (3)
  - Jugular vein thrombosis [Recovering/Resolving]
  - Vena cava thrombosis [Recovering/Resolving]
  - Influenza [Recovered/Resolved]

NARRATIVE: CASE EVENT DATE: 20170217
